FAERS Safety Report 8801558 (Version 1)
Quarter: 2012Q4

REPORT INFORMATION
  Report Type: 
  Country: US (occurrence: US)
  Receive Date: 20120921
  Receipt Date: 20120921
  Transmission Date: 20130627
  Serious: No
  Sender: FDA-Public Use
  Company Number: US-B.I. PHARMACEUTICALS,INC./RIDGEFIELD-2012-BP-22829BP

PATIENT
  Age: 57 None
  Sex: Female
  Weight: 57 kg

DRUGS (6)
  1. SPIRIVA [Suspect]
     Indication: DYSPNOEA
     Dosage: 18 mcg
     Route: 055
     Dates: start: 201201
  2. PRAVASTATIN [Concomitant]
     Indication: BLOOD CHOLESTEROL INCREASED
     Dosage: 40 mg
     Route: 048
     Dates: start: 201112
  3. IBUPROFEN [Concomitant]
     Indication: FIBROMYALGIA
     Dates: start: 201206
  4. TRAZADONE [Concomitant]
     Indication: DEPRESSION
     Dosage: 100 mg
     Route: 048
     Dates: start: 201201
  5. CITALOPRAM [Concomitant]
     Indication: DEPRESSION
     Dosage: 20 mg
     Route: 048
     Dates: start: 201201
  6. ADVAIR [Concomitant]
     Indication: DYSPNOEA
     Route: 055
     Dates: start: 201201

REACTIONS (4)
  - Drug ineffective [Not Recovered/Not Resolved]
  - Weight increased [Not Recovered/Not Resolved]
  - Product quality issue [Recovered/Resolved]
  - Product quality issue [Recovered/Resolved]
